FAERS Safety Report 5492611-X (Version None)
Quarter: 2007Q4

REPORT INFORMATION
  Report Type: 
  Country: None (occurrence: None)
  Receive Date: 20071022
  Receipt Date: 20071019
  Transmission Date: 20080405
  Serious: Yes (Hospitalization)
  Sender: FDA-Public Use
  Company Number: AU-MERCK-0710AUS00148

PATIENT
  Age: 15 Year
  Sex: Female

DRUGS (2)
  1. NOROXIN [Suspect]
     Route: 048
     Dates: start: 20070326, end: 20070401
  2. PROTHIADEN [Concomitant]
     Route: 065
     Dates: start: 20061015, end: 20070401

REACTIONS (5)
  - CONFUSIONAL STATE [None]
  - DISTURBANCE IN ATTENTION [None]
  - DYSTONIA [None]
  - MOTOR DYSFUNCTION [None]
  - SPEECH DISORDER [None]
